FAERS Safety Report 8619866 (Version 2)
Quarter: 2013Q4

REPORT INFORMATION
  Report Type: Spontaneous
  Country: FR (occurrence: FR)
  Receive Date: 20120618
  Receipt Date: 20131011
  Transmission Date: 20140711
  Serious: Yes (Hospitalization)
  Sender: FDA-Public Use
  Company Number: FR-EISAI INC-E3810-05615-SPO-FR

PATIENT
  Age: 85 Year
  Sex: Female

DRUGS (13)
  1. PARIET (RABEPRAZOLE) [Suspect]
     Route: 048
     Dates: start: 20120504, end: 20120519
  2. PARIET (RABEPRAZOLE) [Suspect]
     Route: 048
     Dates: start: 20120523, end: 20120524
  3. IMODIUM [Concomitant]
     Route: 048
  4. GLUCOSE 5% [Concomitant]
  5. ATARAX [Concomitant]
     Route: 048
  6. EBIXA [Concomitant]
     Route: 048
  7. FUMAFER [Concomitant]
     Route: 048
  8. IMOVANE [Concomitant]
     Route: 048
  9. INEXIUM [Concomitant]
     Route: 048
  10. KARDEGIC [Concomitant]
     Route: 048
  11. MODOPAR [Concomitant]
     Route: 048
  12. MYOLASTAN [Concomitant]
     Route: 048
  13. TRIVASTAL [Concomitant]
     Route: 048

REACTIONS (3)
  - Eosinophilia [Recovered/Resolved]
  - Aspartate aminotransferase increased [Recovered/Resolved]
  - Rash maculo-papular [Recovered/Resolved]
